FAERS Safety Report 6303420-3 (Version None)
Quarter: 2009Q3

REPORT INFORMATION
  Report Type: 
  Country: None (occurrence: None)
  Receive Date: 20090810
  Receipt Date: 20090729
  Transmission Date: 20100115
  Serious: Yes (Hospitalization)
  Sender: FDA-Public Use
  Company Number: FR-PFIZER INC-2009247053

PATIENT
  Age: 77 Year

DRUGS (4)
  1. XANAX [Suspect]
     Indication: DEPRESSION
     Dosage: 0.5 DF, 0 TO 4 TIMES DAILY AS NEEDED
     Route: 048
  2. LEXOMIL [Suspect]
     Indication: DEPRESSION
     Dosage: 0.25 TO 0.5 DF, 1X/DAY (IN THE EVENING)
     Route: 048
  3. PROZAC [Suspect]
     Indication: DEPRESSION
     Dosage: 2 DF, 1X/DAY
     Route: 048
  4. KARDEGIC [Concomitant]

REACTIONS (1)
  - FALL [None]
